FAERS Safety Report 7454010-0 (Version None)
Quarter: 2011Q2

REPORT INFORMATION
  Report Type: 
  Country: None (occurrence: None)
  Receive Date: 20110502
  Receipt Date: 20110425
  Transmission Date: 20111010
  Serious: Yes (Life-Threatening, Disabling)
  Sender: FDA-Public Use
  Company Number: US-ROCHE-760363

PATIENT
  Sex: Male
  Weight: 80.7 kg

DRUGS (1)
  1. ACCUTANE [Suspect]
     Indication: ACNE
     Dosage: DOSE REPORTED AS 40MG
     Route: 048
     Dates: start: 19910101

REACTIONS (4)
  - CROHN'S DISEASE [None]
  - COLITIS ULCERATIVE [None]
  - INFLAMMATORY BOWEL DISEASE [None]
  - EPISTAXIS [None]
